FAERS Safety Report 24748897 (Version 3)
Quarter: 2025Q1

REPORT INFORMATION
  Report Type: Spontaneous
  Country: CO (occurrence: CO)
  Receive Date: 20241218
  Receipt Date: 20250312
  Transmission Date: 20250409
  Serious: Yes (Hospitalization)
  Sender: SERVIER
  Company Number: CO-SERVIER-S24016699

PATIENT

DRUGS (2)
  1. ONCASPAR [Suspect]
     Active Substance: PEGASPARGASE
     Indication: Acute lymphocytic leukaemia
     Route: 042
     Dates: start: 20241212, end: 20241212
  2. ONCASPAR [Suspect]
     Active Substance: PEGASPARGASE
     Route: 042

REACTIONS (3)
  - Pyrexia [Recovered/Resolved]
  - Neutralising antibodies [Unknown]
  - Drug ineffective [Recovered/Resolved]

NARRATIVE: CASE EVENT DATE: 20241212
